FAERS Safety Report 15156846 (Version 1)
Quarter: 2018Q3

REPORT INFORMATION
  Report Type: Spontaneous
  Country: US (occurrence: US)
  Receive Date: 20180718
  Receipt Date: 20180718
  Transmission Date: 20181010
  Serious: No
  Sender: FDA-Public Use
  Company Number: US-TEVA-2018-US-926479

PATIENT
  Sex: Female

DRUGS (1)
  1. LESSINA [Suspect]
     Active Substance: ETHINYL ESTRADIOL\LEVONORGESTREL
     Dosage: 0.1 MG/0.02 MG
     Route: 065

REACTIONS (2)
  - Product storage error [Unknown]
  - Menstruation irregular [Unknown]
